FAERS Safety Report 17353819 (Version 3)
Quarter: 2023Q2

REPORT INFORMATION
  Report Type: Spontaneous
  Country: US (occurrence: US)
  Receive Date: 20200131
  Receipt Date: 20230513
  Transmission Date: 20230722
  Serious: Yes (Other)
  Sender: FDA-Public Use
  Company Number: US-GILEAD-2020-0448735

PATIENT
  Age: 47 Year
  Sex: Female
  Weight: 148.75 kg

DRUGS (53)
  1. TRUVADA [Suspect]
     Active Substance: EMTRICITABINE\TENOFOVIR DISOPROXIL FUMARATE
     Indication: HIV infection
     Dosage: UNK
     Route: 048
     Dates: start: 201805, end: 2019
  2. ATRIPLA [Suspect]
     Active Substance: EFAVIRENZ\EMTRICITABINE\TENOFOVIR DISOPROXIL FUMARATE
     Indication: HIV infection
     Dosage: UNK
     Route: 048
     Dates: start: 2017
  3. LASIX [Concomitant]
     Active Substance: FUROSEMIDE
  4. NITROGLYCERIN [Concomitant]
     Active Substance: NITROGLYCERIN
  5. ATIVAN [Concomitant]
     Active Substance: LORAZEPAM
  6. CYMBALTA [Concomitant]
     Active Substance: DULOXETINE HYDROCHLORIDE
  7. FIORICET [Concomitant]
     Active Substance: ACETAMINOPHEN\BUTALBITAL\CAFFEINE
  8. IRON [Concomitant]
     Active Substance: IRON
  9. VITAMINS [Concomitant]
     Active Substance: VITAMINS
  10. ASPIRIN [Concomitant]
     Active Substance: ASPIRIN
  11. CLINDAMYCIN [Concomitant]
     Active Substance: CLINDAMYCIN
  12. CYANOCOBALAMIN [Concomitant]
     Active Substance: CYANOCOBALAMIN
  13. CEFIXIME [Concomitant]
     Active Substance: CEFIXIME
  14. FLONASE [Concomitant]
     Active Substance: FLUTICASONE PROPIONATE
  15. LIPITOR [Concomitant]
     Active Substance: ATORVASTATIN CALCIUM
  16. LORAZEPAM [Concomitant]
     Active Substance: LORAZEPAM
  17. NEURONTIN [Concomitant]
     Active Substance: GABAPENTIN
  18. DILANTIN [Concomitant]
     Active Substance: PHENYTOIN
  19. TRAZODONE [Concomitant]
     Active Substance: TRAZODONE HYDROCHLORIDE
  20. VENTOLIN HFA [Concomitant]
     Active Substance: ALBUTEROL SULFATE
  21. ZOFRAN [Concomitant]
     Active Substance: ONDANSETRON HYDROCHLORIDE
  22. COREG [Concomitant]
     Active Substance: CARVEDILOL
  23. PROTONIX [Concomitant]
     Active Substance: PANTOPRAZOLE SODIUM
  24. TRAMADOL HYDROCHLORIDE [Concomitant]
     Active Substance: TRAMADOL HYDROCHLORIDE
  25. DOCUSATE [Concomitant]
     Active Substance: DOCUSATE
  26. HYDROCODONE [Concomitant]
     Active Substance: HYDROCODONE
  27. HYOSCYAMINE [Concomitant]
     Active Substance: HYOSCYAMINE
  28. LEVOFLOXACIN [Concomitant]
     Active Substance: LEVOFLOXACIN
  29. THIAMINE [Concomitant]
     Active Substance: THIAMINE
  30. ALDACTONE [Concomitant]
     Active Substance: SPIRONOLACTONE
  31. DIHYDROERGOCRISTINE\LOMIFYLLINE [Concomitant]
     Active Substance: DIHYDROERGOCRISTINE\LOMIFYLLINE
  32. KLOR-CON M10 [Concomitant]
     Active Substance: POTASSIUM CHLORIDE
  33. SYNTHROID [Concomitant]
     Active Substance: LEVOTHYROXINE SODIUM
  34. VALIUM [Concomitant]
     Active Substance: DIAZEPAM
  35. .ALPHA.-TOCOPHEROL ACETATE, DL- [Concomitant]
     Active Substance: .ALPHA.-TOCOPHEROL ACETATE, DL-
  36. ZAROXOLYN [Concomitant]
     Active Substance: METOLAZONE
  37. GLUCOPHAGE [Concomitant]
     Active Substance: METFORMIN HYDROCHLORIDE
  38. POTASSIUM [Concomitant]
     Active Substance: POTASSIUM
  39. VITAMIN B COMPLEX [Concomitant]
     Active Substance: CYANOCOBALAMIN\DEXPANTHENOL\NIACINAMIDE\PYRIDOXINE HYDROCHLORIDE\RIBOFLAVIN 5^-PHOSPHATE SODIUM\THIA
  40. TRADJENTA [Concomitant]
     Active Substance: LINAGLIPTIN
  41. KEPPRA [Concomitant]
     Active Substance: LEVETIRACETAM
  42. LIDODERM [Concomitant]
     Active Substance: LIDOCAINE
  43. MEDROL [Concomitant]
     Active Substance: METHYLPREDNISOLONE
  44. NAPROXEN [Concomitant]
     Active Substance: NAPROXEN
  45. ZYRTEC [Concomitant]
     Active Substance: CETIRIZINE HYDROCHLORIDE
  46. ACETAMINOPHEN [Concomitant]
     Active Substance: ACETAMINOPHEN
  47. ZYLOPRIM [Concomitant]
     Active Substance: ALLOPURINOL
  48. SEROQUEL XR [Concomitant]
     Active Substance: QUETIAPINE FUMARATE
  49. LISINOPRIL [Concomitant]
     Active Substance: LISINOPRIL
  50. BUMEX [Concomitant]
     Active Substance: BUMETANIDE
  51. CARVEDILOL [Concomitant]
     Active Substance: CARVEDILOL
  52. SPIRONOLACTONE [Concomitant]
     Active Substance: SPIRONOLACTONE
  53. METOLAZONE [Concomitant]
     Active Substance: METOLAZONE

REACTIONS (6)
  - Chronic kidney disease [Not Recovered/Not Resolved]
  - Pain [Not Recovered/Not Resolved]
  - Emotional distress [Not Recovered/Not Resolved]
  - Anxiety [Not Recovered/Not Resolved]
  - Anhedonia [Not Recovered/Not Resolved]
  - Economic problem [Not Recovered/Not Resolved]

NARRATIVE: CASE EVENT DATE: 20181024
